FAERS Safety Report 4538415-3 (Version None)
Quarter: 2004Q4

REPORT INFORMATION
  Report Type: 
  Country: None (occurrence: None)
  Receive Date: 20041221
  Receipt Date: 20041206
  Transmission Date: 20050328
  Serious: No
  Sender: FDA-Public Use
  Company Number: 2004CG02461

PATIENT
  Age: 45 Year
  Sex: Female

DRUGS (6)
  1. ZOMIG [Suspect]
     Indication: MIGRAINE
  2. NEURONTIN [Suspect]
     Indication: MIGRAINE
  3. ZOLOFT [Suspect]
     Indication: MIGRAINE
     Dosage: 1 DF QD PO
     Route: 048
     Dates: end: 20041201
  4. GESTODENE AND ETHINYL ESTRADIOL [Suspect]
     Indication: ORAL CONTRACEPTION
  5. IBUPROFEN [Concomitant]
  6. LEXOMIL [Concomitant]

REACTIONS (3)
  - CEREBROVASCULAR ACCIDENT [None]
  - FACIAL PAIN [None]
  - FACIAL PALSY [None]
